FAERS Safety Report 9055436 (Version 3)
Quarter: 2014Q2

REPORT INFORMATION
  Report Type: Spontaneous
  Country: US (occurrence: US)
  Receive Date: 20130131
  Receipt Date: 20140417
  Transmission Date: 20141212
  Serious: Yes (Hospitalization, Other)
  Sender: FDA-Public Use
  Company Number: US-PFIZER INC-2013017015

PATIENT
  Age: 82 Year
  Sex: Female
  Weight: 49 kg

DRUGS (1)
  1. ESTRING [Suspect]
     Indication: DYSURIA
     Dosage: UNK
     Route: 067
     Dates: start: 2003

REACTIONS (5)
  - Fall [Unknown]
  - Cardiac disorder [Unknown]
  - Angina pectoris [Unknown]
  - Dizziness [Recovered/Resolved]
  - Nausea [Recovered/Resolved]
